FAERS Safety Report 5339730-6 (Version None)
Quarter: 2007Q2

REPORT INFORMATION
  Report Type: 
  Country: None (occurrence: None)
  Receive Date: 20070525
  Receipt Date: 20070517
  Transmission Date: 20071010
  Serious: Yes (Death, Other)
  Sender: FDA-Public Use
  Company Number: 37210

PATIENT
  Age: 1 Week
  Weight: 5 kg

DRUGS (2)
  1. KETAMINE HCL [Suspect]
     Indication: CARDIAC DISORDER
     Dates: end: 20070101
  2. KETAMINE HCL [Suspect]
     Indication: RESPIRATORY DISORDER NEONATAL
     Dates: end: 20070101

REACTIONS (3)
  - CARDIAC ARREST NEONATAL [None]
  - MEDICATION ERROR [None]
  - OVERDOSE [None]
